FAERS Safety Report 4906873-8 (Version None)
Quarter: 2006Q1

REPORT INFORMATION
  Report Type: 
  Country: None (occurrence: None)
  Receive Date: 20060207
  Receipt Date: 20060109
  Transmission Date: 20060701
  Serious: Yes (Hospitalization)
  Sender: FDA-Public Use
  Company Number: EWC051046656

PATIENT
  Age: 60 Year
  Sex: Female

DRUGS (4)
  1. ZYPREXA [Suspect]
     Indication: DELUSION
     Dosage: 20 + 30 + 10 MG, DAILY (1/D), ORAL
     Route: 048
     Dates: start: 20040819, end: 20041009
  2. ZYPREXA [Suspect]
     Indication: DELUSION
     Dosage: 20 + 30 + 10 MG, DAILY (1/D), ORAL
     Route: 048
     Dates: start: 20041010, end: 20041021
  3. ZYPREXA [Suspect]
     Indication: DELUSION
     Dosage: 20 + 30 + 10 MG, DAILY (1/D), ORAL
     Route: 048
     Dates: start: 20051001
  4. CISORDINOL - SLOW RELEASE (ZUCLOPENTHIXOL DECANOATE) [Concomitant]

REACTIONS (6)
  - BLOOD PRESSURE INCREASED [None]
  - CHEST PAIN [None]
  - DYSPNOEA [None]
  - NERVOUSNESS [None]
  - PRESCRIBED OVERDOSE [None]
  - SUPRAVENTRICULAR TACHYCARDIA [None]
